FAERS Safety Report 20528805 (Version 1)
Quarter: 2022Q1

REPORT INFORMATION
  Report Type: Spontaneous
  Country: US (occurrence: US)
  Receive Date: 20220228
  Receipt Date: 20220228
  Transmission Date: 20220423
  Serious: No
  Sender: FDA-Public Use
  Company Number: US-PFIZER INC-2021442760

PATIENT
  Age: 17 Year
  Sex: Female
  Weight: 65.76 kg

DRUGS (2)
  1. XELJANZ [Suspect]
     Active Substance: TOFACITINIB CITRATE
     Indication: Juvenile idiopathic arthritis
     Dosage: 5 MG, 2X/DAY
     Route: 048
     Dates: start: 20210422
  2. XELJANZ [Suspect]
     Active Substance: TOFACITINIB CITRATE
     Dosage: 11 MG, 1X/DAY

REACTIONS (2)
  - Off label use [Unknown]
  - Musculoskeletal stiffness [Recovering/Resolving]
